FAERS Safety Report 25357530 (Version 1)
Quarter: 2025Q2

REPORT INFORMATION
  Report Type: Spontaneous
  Country: US (occurrence: US)
  Receive Date: 20250526
  Receipt Date: 20250526
  Transmission Date: 20250716
  Serious: No
  Sender: ACCORD
  Company Number: US-Accord-458760

PATIENT
  Sex: Female

DRUGS (6)
  1. METHOTREXATE [Suspect]
     Active Substance: METHOTREXATE
     Indication: Polymyalgia rheumatica
  2. FOLIC ACID [Concomitant]
     Active Substance: FOLIC ACID
  3. ROMOSOZUMAB [Concomitant]
     Active Substance: ROMOSOZUMAB
  4. FLECAINIDE [Concomitant]
     Active Substance: FLECAINIDE
  5. CALCIUM\CHOLECALCIFEROL [Concomitant]
     Active Substance: CALCIUM\CHOLECALCIFEROL
  6. SARILUMAB [Concomitant]
     Active Substance: SARILUMAB

REACTIONS (1)
  - Drug ineffective [Unknown]
